FAERS Safety Report 8000213-6 (Version None)
Quarter: 2011Q4

REPORT INFORMATION
  Report Type: 
  Country: None (occurrence: None)
  Receive Date: 20111222
  Receipt Date: 20111220
  Transmission Date: 20120403
  Serious: Yes (Other)
  Sender: FDA-Public Use
  Company Number: DE-AMGEN-DEUSP2011058551

PATIENT
  Age: 63 Year
  Sex: Female
  Weight: 55 kg

DRUGS (8)
  1. OVESTIN [Concomitant]
  2. NACL [Concomitant]
     Route: 042
  3. CYCLOPHOSPHAMIDE [Concomitant]
     Dosage: 600 MG/M2, UNK
  4. MESNA [Concomitant]
     Route: 042
  5. NEULASTA [Suspect]
     Indication: CHEMOTHERAPY
     Dosage: 6 MG, ONE TIME DOSE
     Route: 058
     Dates: start: 20110830, end: 20110830
  6. EPIRUBICIN [Concomitant]
  7. DOCETAXEL [Concomitant]
     Dosage: 75 MG/M2, UNK
  8. FORTECORTIN                        /00016001/ [Concomitant]
     Dosage: UNK MG, UNK
     Route: 042

REACTIONS (11)
  - BONE PAIN [None]
  - MUSCULOSKELETAL STIFFNESS [None]
  - RENAL FAILURE [None]
  - FEAR OF DEATH [None]
  - PAIN OF SKIN [None]
  - FACE OEDEMA [None]
  - RENAL PAIN [None]
  - NON-CARDIAC CHEST PAIN [None]
  - EMOTIONAL DISTRESS [None]
  - BURNING SENSATION [None]
  - ERYTHEMA [None]
